FAERS Safety Report 5138621-3 (Version None)
Quarter: 2006Q4

REPORT INFORMATION
  Report Type: 
  Country: None (occurrence: None)
  Receive Date: 20061030
  Receipt Date: 20061011
  Transmission Date: 20070319
  Serious: Yes (Hospitalization)
  Sender: FDA-Public Use
  Company Number: JP-JPN-A200604139

PATIENT
  Age: 77 Year
  Sex: Female

DRUGS (3)
  1. VALTREX [Suspect]
     Indication: HERPES ZOSTER
     Route: 048
     Dates: start: 20060901, end: 20060906
  2. LOXONIN [Suspect]
     Indication: HERPES ZOSTER
     Route: 048
     Dates: start: 20060901, end: 20060906
  3. GENTACIN [Concomitant]
     Indication: HERPES ZOSTER
     Dosage: 1.5G PER DAY
     Route: 061
     Dates: start: 20060901

REACTIONS (6)
  - BLISTER [None]
  - DIZZINESS [None]
  - LIP PAIN [None]
  - RENAL DISORDER [None]
  - SCAB [None]
  - SWELLING FACE [None]
